FAERS Safety Report 11020137 (Version 1)
Quarter: 2015Q2

REPORT INFORMATION
  Report Type: Spontaneous
  Country: US (occurrence: US)
  Receive Date: 20150413
  Receipt Date: 20150413
  Transmission Date: 20150821
  Serious: Yes (Other)
  Sender: FDA-Public Use
  Company Number: US-CELGENEUS-USA-2015040545

PATIENT
  Age: 77 Year
  Sex: Female
  Weight: 69.01 kg

DRUGS (1)
  1. REVLIMID [Suspect]
     Active Substance: LENALIDOMIDE
     Indication: PLASMA CELL MYELOMA
     Dosage: 25 MILLIGRAM
     Route: 048
     Dates: start: 20150208

REACTIONS (5)
  - Nausea [Unknown]
  - Muscle spasms [Unknown]
  - Chest pain [Unknown]
  - Oedema peripheral [Unknown]
  - Vomiting [Unknown]

NARRATIVE: CASE EVENT DATE: 20150329
